FAERS Safety Report 5049226-7 (Version None)
Quarter: 2006Q2

REPORT INFORMATION
  Report Type: 
  Country: None (occurrence: None)
  Receive Date: 20060613
  Receipt Date: 20060315
  Transmission Date: 20061013
  Serious: Yes (Hospitalization)
  Sender: FDA-Public Use
  Company Number: 2006-00606

PATIENT
  Age: 77 Year
  Sex: Male

DRUGS (4)
  1. VELCADE [Suspect]
     Indication: MULTIPLE MYELOMA
     Dosage: INTRAVENOUS
     Route: 042
     Dates: start: 20050228
  2. MS CONTIN [Concomitant]
  3. COLACE (DOCUSATE SODIUM) [Concomitant]
  4. REMERON [Concomitant]

REACTIONS (1)
  - INTESTINAL OBSTRUCTION [None]
